FAERS Safety Report 7899153 (Version 2)
Quarter: 2012Q4

REPORT INFORMATION
  Report Type: 
  Country: VE (occurrence: VE)
  Receive Date: 20110414
  Receipt Date: 20121210
  Transmission Date: 20130627
  Serious: Yes (Hospitalization, Other)
  Sender: FDA-Public Use
  Company Number: PHHY2011VE27949

PATIENT
  Age: 57 Year
  Sex: Female

DRUGS (1)
  1. DIOVAN [Suspect]
     Indication: HYPERTENSION
     Dosage: 160 mg, daily
     Route: 048
     Dates: start: 1996, end: 2004

REACTIONS (3)
  - Haemorrhagic stroke [Recovered/Resolved]
  - Blood pressure inadequately controlled [Recovered/Resolved]
  - Drug ineffective [Unknown]
